FAERS Safety Report 8388385-5 (Version None)
Quarter: 2012Q2

REPORT INFORMATION
  Report Type: 
  Country: None (occurrence: None)
  Receive Date: 20120525
  Receipt Date: 20120514
  Transmission Date: 20120825
  Serious: Yes (Hospitalization, Disabling, Other)
  Sender: FDA-Public Use
  Company Number: US-ELI_LILLY_AND_COMPANY-US201205005339

PATIENT
  Sex: Female
  Weight: 74.83 kg

DRUGS (3)
  1. LYRICA [Concomitant]
     Indication: FIBROMYALGIA
     Dosage: 300 MG, BID
     Dates: end: 20110601
  2. CYMBALTA [Suspect]
     Indication: FIBROMYALGIA
     Dosage: UNK, UNKNOWN
  3. HYDROCODONE BITARTRATE [Concomitant]
     Indication: PAIN
     Dosage: UNK
     Dates: start: 20100101, end: 20100101

REACTIONS (5)
  - BACK DISORDER [None]
  - INTERVERTEBRAL DISC PROTRUSION [None]
  - FIBROMYALGIA [None]
  - DRUG INEFFECTIVE [None]
  - INTENTIONAL DRUG MISUSE [None]
